FAERS Safety Report 8637669 (Version 2)
Quarter: 2012Q4

REPORT INFORMATION
  Report Type: 
  Country: FR (occurrence: FR)
  Receive Date: 20120627
  Receipt Date: 20120917
  Transmission Date: 20130627
  Serious: Yes (Hospitalization, Other)
  Sender: FDA-Public Use
  Company Number: FR-PFIZER INC-2012151603

PATIENT
  Age: 53 Year
  Sex: Female
  Weight: 76 kg

DRUGS (3)
  1. ZOLOFT [Suspect]
     Dosage: UNK
     Route: 048
     Dates: end: 20120629
  2. LEVOTHYROX [Interacting]
     Indication: HYPOTHYROIDISM
     Dosage: UNK
     Route: 048
     Dates: start: 2006
  3. LEVOTHYROX [Interacting]
     Indication: BASEDOW^S DISEASE

REACTIONS (2)
  - Drug interaction [Unknown]
  - Hypothyroidism [Unknown]
